FAERS Safety Report 6736280-7 (Version None)
Quarter: 2010Q2

REPORT INFORMATION
  Report Type: 
  Country: None (occurrence: None)
  Receive Date: 20100521
  Receipt Date: 20100517
  Transmission Date: 20101027
  Serious: Yes (Death)
  Sender: FDA-Public Use
  Company Number: JP-GENENTECH-301916

PATIENT
  Age: 86 Year
  Sex: Female

DRUGS (1)
  1. ACTIVASE [Suspect]
     Indication: CEREBRAL ARTERY EMBOLISM

REACTIONS (2)
  - DISSEMINATED INTRAVASCULAR COAGULATION [None]
  - SHOCK [None]
